FAERS Safety Report 7638329-6 (Version None)
Quarter: 2011Q3

REPORT INFORMATION
  Report Type: 
  Country: None (occurrence: None)
  Receive Date: 20110727
  Receipt Date: 20110727
  Transmission Date: 20111222
  Serious: No
  Sender: FDA-Public Use
  Company Number: None

PATIENT
  Sex: Male
  Weight: 9.979 kg

DRUGS (1)
  1. OMEPRAZOLE [Suspect]
     Dosage: 2MG/ML
     Route: 048
     Dates: start: 20110720, end: 20110721

REACTIONS (5)
  - EYE SWELLING [None]
  - SKIN DISCOLOURATION [None]
  - HYPERHIDROSIS [None]
  - VOMITING [None]
  - OEDEMA PERIPHERAL [None]
